FAERS Safety Report 13516718 (Version 2)
Quarter: 2017Q2

REPORT INFORMATION
  Report Type: Spontaneous
  Country: US (occurrence: US)
  Receive Date: 20170505
  Receipt Date: 20170608
  Transmission Date: 20170830
  Serious: Yes (Hospitalization)
  Sender: FDA-Public Use
  Company Number: US-BEH-2017080100

PATIENT
  Age: 81 Year
  Sex: Female
  Weight: 85.26 kg

DRUGS (16)
  1. DIPHENHYDRAMINE. [Concomitant]
     Active Substance: DIPHENHYDRAMINE
  2. ATENOLOL. [Concomitant]
     Active Substance: ATENOLOL
  3. LEXAPRO [Concomitant]
     Active Substance: ESCITALOPRAM OXALATE
  4. PLAVIX [Concomitant]
     Active Substance: CLOPIDOGREL BISULFATE
  5. HIZENTRA [Suspect]
     Active Substance: HUMAN IMMUNOGLOBULIN G
     Indication: HYPER IGM SYNDROME
     Dosage: 9 G, UNK
     Route: 058
     Dates: start: 20110414
  6. HIZENTRA [Suspect]
     Active Substance: HUMAN IMMUNOGLOBULIN G
     Dosage: UNK
     Route: 058
  7. EPINEPHRINE. [Suspect]
     Active Substance: EPINEPHRINE
  8. FENOFIBRATE. [Concomitant]
     Active Substance: FENOFIBRATE
  9. NEXIUM [Concomitant]
     Active Substance: ESOMEPRAZOLE MAGNESIUM
  10. MICARDIS [Concomitant]
     Active Substance: TELMISARTAN
  11. DAILY MULTIVITAMIN [Concomitant]
     Active Substance: VITAMINS
  12. LIDOCAINE. [Concomitant]
     Active Substance: LIDOCAINE
  13. HIZENTRA [Suspect]
     Active Substance: HUMAN IMMUNOGLOBULIN G
     Dosage: UNK
     Route: 058
  14. WARFARIN [Concomitant]
     Active Substance: WARFARIN
  15. VITAMIN C [Concomitant]
     Active Substance: ASCORBIC ACID
  16. LIPITOR [Concomitant]
     Active Substance: ATORVASTATIN CALCIUM

REACTIONS (2)
  - Cardiac disorder [Unknown]
  - Chest pain [Unknown]

NARRATIVE: CASE EVENT DATE: 2017
